FAERS Safety Report 5465746-5 (Version None)
Quarter: 2007Q3

REPORT INFORMATION
  Report Type: 
  Country: None (occurrence: None)
  Receive Date: 20070924
  Receipt Date: 20070914
  Transmission Date: 20080115
  Serious: Yes (Death, Hospitalization)
  Sender: FDA-Public Use
  Company Number: A0668771A

PATIENT
  Age: 80 Year
  Sex: Male

DRUGS (4)
  1. SERETIDE [Suspect]
     Indication: ASTHMA
     Route: 055
     Dates: start: 20060801, end: 20070820
  2. BEROTEC [Concomitant]
     Dates: start: 20070412, end: 20070820
  3. ATROVENT [Concomitant]
     Dates: start: 20070412, end: 20070820
  4. SODIUM CHLORIDE [Concomitant]
     Dates: start: 20070412, end: 20070820

REACTIONS (4)
  - CONDITION AGGRAVATED [None]
  - DYSPNOEA [None]
  - EMPHYSEMA [None]
  - PNEUMONIA [None]
